FAERS Safety Report 7601965-7 (Version None)
Quarter: 2011Q3

REPORT INFORMATION
  Report Type: 
  Country: None (occurrence: None)
  Receive Date: 20110711
  Receipt Date: 20110623
  Transmission Date: 20111222
  Serious: No
  Sender: FDA-Public Use
  Company Number: US-B.I. PHARMACEUTICALS,INC./RIDGEFIELD-2011-BP-13801BP

PATIENT
  Age: 72 Year
  Sex: Female
  Weight: 55.5 kg

DRUGS (3)
  1. PRADAXA [Suspect]
  2. PRADAXA [Suspect]
     Dosage: 150 MG
     Route: 048
     Dates: start: 20110525
  3. AMIODARONE HCL [Concomitant]
     Dosage: 200 MG

REACTIONS (2)
  - CONTUSION [None]
  - ACTIVATED PARTIAL THROMBOPLASTIN TIME PROLONGED [None]
